FAERS Safety Report 21617987 (Version 1)
Quarter: 2022Q4

REPORT INFORMATION
  Report Type: Spontaneous
  Country: US (occurrence: US)
  Receive Date: 20221119
  Receipt Date: 20221119
  Transmission Date: 20230113
  Serious: Yes (Other)
  Sender: FDA-Public Use
  Company Number: US-002147023-NVSC2022US258148

PATIENT
  Weight: 51 kg

DRUGS (1)
  1. KYMRIAH [Suspect]
     Active Substance: TISAGENLECLEUCEL
     Indication: Acute lymphocytic leukaemia
     Dosage: UNK, (2.5E8 CAR-POSITIVE VIABLE T CELLS), ONCE/SINGLE
     Route: 042
     Dates: start: 20221010

REACTIONS (1)
  - Sepsis [Unknown]
